FAERS Safety Report 7753052-5 (Version None)
Quarter: 2011Q3

REPORT INFORMATION
  Report Type: 
  Country: None (occurrence: None)
  Receive Date: 20110915
  Receipt Date: 20110906
  Transmission Date: 20111222
  Serious: Yes (Other)
  Sender: FDA-Public Use
  Company Number: US-AMGEN-USASP2011045464

PATIENT
  Sex: Female

DRUGS (1)
  1. ENBREL [Suspect]
     Indication: ANKYLOSING SPONDYLITIS
     Dosage: 50 MG, QWK
     Dates: start: 20010827

REACTIONS (13)
  - INJECTION SITE SWELLING [None]
  - INJECTION SITE WARMTH [None]
  - INJECTION SITE PRURITUS [None]
  - ANXIETY [None]
  - DYSPNOEA EXERTIONAL [None]
  - POST-TRAUMATIC STRESS DISORDER [None]
  - INJECTION SITE PAIN [None]
  - LYME DISEASE [None]
  - MEMORY IMPAIRMENT [None]
  - LYMPHADENOPATHY [None]
  - INJECTION SITE ERYTHEMA [None]
  - ALOPECIA [None]
  - FATIGUE [None]
